FAERS Safety Report 12225726 (Version 1)
Quarter: 2016Q1

REPORT INFORMATION
  Report Type: Spontaneous
  Country: US (occurrence: US)
  Receive Date: 20160331
  Receipt Date: 20160331
  Transmission Date: 20160526
  Serious: No
  Sender: FDA-Public Use
  Company Number: US-MDT-ADR-2016-00597

PATIENT
  Sex: Male

DRUGS (1)
  1. BACLOFEN, UNKNOWN [Suspect]
     Active Substance: BACLOFEN
     Route: 037

REACTIONS (2)
  - Medical device site pain [Not Recovered/Not Resolved]
  - Burning sensation [Not Recovered/Not Resolved]
